FAERS Safety Report 9562153 (Version 1)
Quarter: 2013Q3

REPORT INFORMATION
  Report Type: Spontaneous
  Country: TW (occurrence: None)
  Receive Date: 20130925
  Receipt Date: 20130925
  Transmission Date: 20140515
  Serious: Yes (Hospitalization)
  Sender: FDA-Public Use
  Company Number: 2013P1019318

PATIENT
  Age: 48 Year
  Sex: Male

DRUGS (1)
  1. AMPHETAMINE [Suspect]
     Route: 055

REACTIONS (18)
  - Drug abuse [None]
  - Incorrect route of drug administration [None]
  - Paraphilia [None]
  - Urinary tract infection [None]
  - Foreign body [None]
  - Orchitis [None]
  - Urinary incontinence [None]
  - Stress at work [None]
  - Family stress [None]
  - Hypersomnia [None]
  - Haematuria [None]
  - Nephrolithiasis [None]
  - Calculus ureteric [None]
  - Calculus bladder [None]
  - Ureteric fistula [None]
  - Urethral injury [None]
  - Economic problem [None]
  - Depression [None]
